FAERS Safety Report 6531913-2 (Version None)
Quarter: 2010Q1

REPORT INFORMATION
  Report Type: 
  Country: None (occurrence: None)
  Receive Date: 20100108
  Receipt Date: 20091231
  Transmission Date: 20100710
  Serious: Yes (Other)
  Sender: FDA-Public Use
  Company Number: US-JNJFOC-20091202579

PATIENT
  Sex: Male
  Weight: 93.44 kg

DRUGS (6)
  1. RISPERDAL [Suspect]
     Indication: DEPRESSION
     Dosage: 1/2 IN MORNING AND 1/2 IN EVENING
     Route: 048
  2. RISPERDAL [Suspect]
     Indication: SCHIZOPHRENIA
     Dosage: 1/2 IN MORNING AND 1/2 IN EVENING
     Route: 048
  3. RISPERDAL [Suspect]
     Indication: ANXIETY DISORDER
     Dosage: 1/2 IN MORNING AND 1/2 IN EVENING
     Route: 048
  4. RISPERDAL [Suspect]
     Indication: POST-TRAUMATIC STRESS DISORDER
     Dosage: 1/2 IN MORNING AND 1/2 IN EVENING
     Route: 048
  5. IPRATROPIUM BROMIDE AND ALBUTEROL SULFATE [Concomitant]
     Route: 065
  6. ZOLOFT [Concomitant]
     Route: 065

REACTIONS (8)
  - BRONCHITIS [None]
  - CHRONIC OBSTRUCTIVE PULMONARY DISEASE [None]
  - EMPHYSEMA [None]
  - FALL [None]
  - LUNG INFILTRATION [None]
  - PNEUMONIA [None]
  - RESPIRATORY DISORDER [None]
  - WRIST FRACTURE [None]
